FAERS Safety Report 8404541 (Version 4)
Quarter: 2012Q4

REPORT INFORMATION
  Report Type: 
  Country: IT (occurrence: IT)
  Receive Date: 20120214
  Receipt Date: 20121003
  Transmission Date: 20130627
  Serious: Yes (Death, Other)
  Sender: FDA-Public Use
  Company Number: IT-CELGENEUS-083-21880-12011019

PATIENT
  Age: 75 Year
  Sex: Female

DRUGS (2)
  1. REVLIMID [Suspect]
     Indication: MYELOMA RECURRENCE
     Dosage: 10 Milligram
     Route: 048
     Dates: start: 20100824
  2. REVLIMID [Suspect]
     Dosage: Reduced dosage.
     Route: 048
     Dates: end: 20110127

REACTIONS (4)
  - Plasma cell myeloma [Fatal]
  - Anaemia [Not Recovered/Not Resolved]
  - Diarrhoea [Not Recovered/Not Resolved]
  - Gastritis [Not Recovered/Not Resolved]
